FAERS Safety Report 24717495 (Version 1)
Quarter: 2024Q4

REPORT INFORMATION
  Report Type: Spontaneous
  Country: JP (occurrence: JP)
  Receive Date: 20241210
  Receipt Date: 20241210
  Transmission Date: 20250115
  Serious: Yes (Death, Other)
  Sender: BRISTOL-MYERS SQUIBB COMPANY
  Company Number: JP-ONO-2024JP024734

PATIENT

DRUGS (1)
  1. OPDIVO [Suspect]
     Active Substance: NIVOLUMAB
     Indication: Mesothelioma malignant
     Dosage: UNK
     Route: 041

REACTIONS (5)
  - Anti-melanoma differentiation-associated protein 5 antibody positive [Fatal]
  - Acute interstitial pneumonitis [Fatal]
  - Aspergillus infection [Fatal]
  - Skin disorder [Unknown]
  - Off label use [Unknown]
